FAERS Safety Report 24200624 (Version 1)
Quarter: 2024Q3

REPORT INFORMATION
  Report Type: Spontaneous
  Country: US (occurrence: US)
  Receive Date: 20240812
  Receipt Date: 20240812
  Transmission Date: 20241017
  Serious: No
  Sender: ANI
  Company Number: US-ANIPHARMA-2024-US-037681

PATIENT
  Age: 47 Year
  Sex: Female

DRUGS (1)
  1. CORTICOTROPIN [Suspect]
     Active Substance: CORTICOTROPIN
     Indication: Conjunctivitis allergic
     Dates: start: 20240703

REACTIONS (3)
  - Injection site erythema [Recovered/Resolved]
  - Injection site pain [Not Recovered/Not Resolved]
  - Feeling hot [Recovered/Resolved]

NARRATIVE: CASE EVENT DATE: 20240706
